FAERS Safety Report 9016514 (Version 2)
Quarter: 2013Q2

REPORT INFORMATION
  Report Type: Spontaneous
  Country: BR (occurrence: BR)
  Receive Date: 20130116
  Receipt Date: 20130613
  Transmission Date: 20140414
  Serious: Yes (Other)
  Sender: FDA-Public Use
  Company Number: BR-AMGEN-BRACT2013002212

PATIENT
  Age: 45 Year
  Sex: Female
  Weight: 52 kg

DRUGS (2)
  1. ENBREL [Suspect]
     Indication: RHEUMATOID ARTHRITIS
     Dosage: 25 MG, 2X/WEEK (ON MONDAYS AND ON THURSDAYS)
     Route: 058
     Dates: start: 20101230, end: 201208
  2. METHOTREXATE [Concomitant]
     Dosage: 15 MG, WEEKLY
     Dates: start: 1998, end: 201208

REACTIONS (10)
  - Wrong technique in drug usage process [Unknown]
  - Hyperhidrosis [Unknown]
  - Pain [Unknown]
  - Deformity [Unknown]
  - Inflammation [Unknown]
  - Application site hypersensitivity [Unknown]
  - Tuberculosis [Unknown]
  - Application site erythema [Unknown]
  - Application site pruritus [Unknown]
  - Application site papules [Unknown]
